FAERS Safety Report 11403988 (Version 3)
Quarter: 2015Q3

REPORT INFORMATION
  Report Type: Report from Study
  Country: US (occurrence: US)
  Receive Date: 20150821
  Receipt Date: 20150918
  Transmission Date: 20151125
  Serious: Yes (Other)
  Sender: FDA-Public Use
  Company Number: US-PFIZER INC-2010104867

PATIENT
  Age: 51 Year
  Sex: Female
  Weight: 59 kg

DRUGS (3)
  1. SUTENT [Suspect]
     Active Substance: SUNITINIB MALATE
     Indication: RENAL CANCER STAGE IV
     Dosage: 50 MG ONCE DAILY FOR ONE WEEK ON AND ONE WEEK OFF
     Route: 048
     Dates: start: 201006
  2. SUTENT [Suspect]
     Active Substance: SUNITINIB MALATE
     Dosage: 37.5 MG, 4 WEEKS ON THEN 2 WEEKS OFF
     Dates: end: 201504
  3. SUTENT [Suspect]
     Active Substance: SUNITINIB MALATE
     Dosage: 50 MG, ONCE DAILY FOR ONE WEEK ON AND THREE WEEK OFF
     Dates: start: 201007

REACTIONS (10)
  - Platelet count decreased [Unknown]
  - Renal cancer stage IV [Unknown]
  - Blood pressure abnormal [Unknown]
  - Malaise [Unknown]
  - Fatigue [Unknown]
  - Oral pain [Unknown]
  - Disease progression [Unknown]
  - Diarrhoea [Unknown]
  - Thyroid disorder [Unknown]
  - Blood count abnormal [Unknown]

NARRATIVE: CASE EVENT DATE: 201007
